FAERS Safety Report 12261984 (Version 1)
Quarter: 2016Q2

REPORT INFORMATION
  Report Type: Spontaneous
  Country: IT (occurrence: IT)
  Receive Date: 20160413
  Receipt Date: 20160413
  Transmission Date: 20160815
  Serious: Yes (Death, Life-Threatening, Other)
  Sender: FDA-Public Use
  Company Number: IT-BRISTOL-MYERS SQUIBB COMPANY-BMS-2016-025751

PATIENT
  Age: 84 Year
  Sex: Male

DRUGS (3)
  1. COUMADIN [Suspect]
     Active Substance: WARFARIN SODIUM
     Indication: DEEP VEIN THROMBOSIS
     Dosage: 5 MG, QD
     Route: 048
     Dates: start: 20151125, end: 20151130
  2. CLOPIDOGREL [Concomitant]
     Active Substance: CLOPIDOGREL BISULFATE
     Indication: PERIPHERAL ISCHAEMIA
     Dosage: 75 MG, UNK
     Route: 048
     Dates: start: 20140901, end: 20151120
  3. DELTACORTENE [Concomitant]
     Active Substance: PREDNISONE
     Indication: RHEUMATOID ARTHRITIS
     Dosage: 12.5 MG, UNK
     Route: 048
     Dates: end: 20151209

REACTIONS (6)
  - Haematemesis [Unknown]
  - Duodenal ulcer haemorrhage [Unknown]
  - Transfusion [Unknown]
  - Respiratory disorder [Fatal]
  - Cardiac failure [Fatal]
  - Anaemia [Unknown]

NARRATIVE: CASE EVENT DATE: 20151130
